FAERS Safety Report 17878598 (Version 1)
Quarter: 2020Q2

REPORT INFORMATION
  Report Type: Spontaneous
  Country: US (occurrence: US)
  Receive Date: 20200610
  Receipt Date: 20200610
  Transmission Date: 20200714
  Serious: Yes (Other)
  Sender: FDA-Public Use
  Company Number: US-ROCHE-2614274

PATIENT

DRUGS (1)
  1. AVASTIN [Suspect]
     Active Substance: BEVACIZUMAB
     Indication: NEOVASCULAR AGE-RELATED MACULAR DEGENERATION
     Route: 065

REACTIONS (7)
  - Headache [Unknown]
  - Thrombosis [Recovered/Resolved]
  - Injection site pain [Unknown]
  - Intentional product use issue [Unknown]
  - Off label use [Unknown]
  - Eye disorder [Unknown]
  - Breast cancer [Unknown]
